FAERS Safety Report 4278550-0 (Version None)
Quarter: 2004Q1

REPORT INFORMATION
  Report Type: 
  Country: None (occurrence: None)
  Receive Date: 20040122
  Receipt Date: 20031125
  Transmission Date: 20041129
  Serious: No
  Sender: FDA-Public Use
  Company Number: D01200301758

PATIENT
  Age: 71 Year
  Sex: Male

DRUGS (13)
  1. OXALIPLATIN [Suspect]
     Dosage: 85 MG/M2 Q2W
     Route: 042
     Dates: start: 20030925, end: 20030925
  2. FLUOROURACIL [Suspect]
     Dosage: 400 MG/M2 AS IV BOLUS THEN 600 MG/M2 AS 22 HOURS CONTINUOUS INFUSION D1-D2 Q2W
     Route: 042
     Dates: start: 20030925, end: 20030927
  3. (XALIPRODEN) - CAPSULE - 1 MG [Suspect]
     Indication: COLORECTAL CANCER METASTATIC
     Dosage: 1 MG QD
     Route: 042
     Dates: start: 20030703
  4. LEUCOVORIN CALCIUM [Suspect]
     Dosage: 200 MG/M2 AS 2 HOUFRS INFUSION ON D1-D2 Q2W
     Route: 042
  5. COPROXAMOL (CO-PROXAMOL) [Concomitant]
  6. ACETAMINOPHEN [Concomitant]
  7. WARFARIN SODIUM [Concomitant]
  8. METOCLOPRAMIDE [Concomitant]
  9. DEXAMETHASONE [Concomitant]
  10. ONDANSETRON [Concomitant]
  11. SENNA [Concomitant]
  12. RANITIDINE [Concomitant]
  13. NYSTATIN [Concomitant]

REACTIONS (3)
  - DIABETES MELLITUS NON-INSULIN-DEPENDENT [None]
  - DRY MOUTH [None]
  - MUSCLE CRAMP [None]
